FAERS Safety Report 8839802 (Version 1)
Quarter: 2012Q4

REPORT INFORMATION
  Report Type: Spontaneous
  Country: GB (occurrence: None)
  Receive Date: 20121011
  Receipt Date: 20121011
  Transmission Date: 20130627
  Serious: Yes (Other)
  Sender: FDA-Public Use
  Company Number: AUR-APL-2012-04300

PATIENT
  Age: 69 Year
  Sex: Male
  Weight: 97 kg

DRUGS (1)
  1. SIMVASTATIN [Suspect]
     Indication: HIGH CHOLESTEROL
     Dosage: (40 mg) . Oral
     Route: 048
     Dates: start: 20060802

REACTIONS (2)
  - Back pain [None]
  - Food interaction [None]
